FAERS Safety Report 13294146 (Version 2)
Quarter: 2017Q1

REPORT INFORMATION
  Report Type: Spontaneous
  Country: KR (occurrence: KR)
  Receive Date: 20170303
  Receipt Date: 20170328
  Transmission Date: 20170428
  Serious: Yes (Hospitalization, Other)
  Sender: FDA-Public Use
  Company Number: KR-009507513-1702KOR012217

PATIENT
  Age: 69 Year
  Sex: Male
  Weight: 57.2 kg

DRUGS (13)
  1. EMEND (FOSAPREPITANT DIMEGLUMINE) [Suspect]
     Active Substance: FOSAPREPITANT DIMEGLUMINE
     Dosage: 150 MG, ONCE
     Route: 042
     Dates: start: 20170214, end: 20170214
  2. CURAN [Concomitant]
     Active Substance: RANITIDINE HYDROCHLORIDE
     Indication: PROPHYLAXIS OF NAUSEA AND VOMITING
     Dosage: 150 MG, BID
     Route: 048
     Dates: start: 20170125, end: 20170127
  3. LASTET [Concomitant]
     Active Substance: ETOPOSIDE
     Indication: SMALL CELL LUNG CANCER
     Dosage: CONCENTRATION: 100MG/5ML;161 MG, QD; CYCLE 1
     Route: 042
     Dates: start: 20170124, end: 20170126
  4. CURAN [Concomitant]
     Active Substance: RANITIDINE HYDROCHLORIDE
     Indication: PROPHYLAXIS OF NAUSEA AND VOMITING
     Dosage: CONCENTRATION: 50 MG/2ML; 50 MG, ONCE
     Route: 042
     Dates: start: 20170124, end: 20170124
  5. EMEND (FOSAPREPITANT DIMEGLUMINE) [Suspect]
     Active Substance: FOSAPREPITANT DIMEGLUMINE
     Indication: PROPHYLAXIS OF NAUSEA AND VOMITING
     Dosage: 150 MG, ONCE
     Route: 042
     Dates: start: 20170124, end: 20170124
  6. DEXAMETHASONE YU HAN [Concomitant]
     Indication: PROPHYLAXIS OF NAUSEA AND VOMITING
     Dosage: 4 MG, BID
     Route: 048
     Dates: start: 20170125, end: 20170127
  7. INCRUSE ELLIPTA [Concomitant]
     Active Substance: UMECLIDINIUM BROMIDE
     Indication: CHRONIC OBSTRUCTIVE PULMONARY DISEASE
     Dosage: 1 PUFF, QD
     Route: 055
     Dates: start: 201611
  8. CISPLAN [Concomitant]
     Active Substance: CISPLATIN
     Indication: SMALL CELL LUNG CANCER
     Dosage: CONCENTRATION:50MG/100ML; 112 MG, ONCE; CYCLE 1
     Route: 042
     Dates: start: 20170124, end: 20170124
  9. SANCUSO [Concomitant]
     Active Substance: GRANISETRON
     Indication: PROPHYLAXIS OF NAUSEA AND VOMITING
     Dosage: CONCENTRATION: 80.2X66.6MM2; 1 EA, QD; ROUTE: PATCH
     Route: 050
     Dates: start: 20170123, end: 20170129
  10. MEGACE F [Concomitant]
     Indication: DECREASED APPETITE
     Dosage: 5 ML, QD
     Route: 048
     Dates: start: 20170123
  11. LASIX [Concomitant]
     Active Substance: FUROSEMIDE
     Indication: PROPHYLAXIS
     Dosage: CONCENTRATION: 20MG/2ML;20 MG, ONCE
     Route: 042
     Dates: start: 20170124, end: 20170124
  12. LUTHIONE [Concomitant]
     Indication: PROPHYLAXIS
     Dosage: 1800 MG ONCE
     Route: 042
     Dates: start: 20170124, end: 20170124
  13. RELVAR 200 ELLIPTA [Concomitant]
     Indication: CHRONIC OBSTRUCTIVE PULMONARY DISEASE
     Dosage: 1 PUFF, QD
     Route: 055
     Dates: start: 201611

REACTIONS (8)
  - Cancer pain [Unknown]
  - Gastrooesophageal reflux disease [Recovering/Resolving]
  - Anxiety [Unknown]
  - Insomnia [Not Recovered/Not Resolved]
  - Constipation [Recovered/Resolved]
  - Dyspepsia [Unknown]
  - Pneumonia [Recovered/Resolved]
  - Nausea [Unknown]

NARRATIVE: CASE EVENT DATE: 20170203
